FAERS Safety Report 8589036-7 (Version None)
Quarter: 2012Q3

REPORT INFORMATION
  Report Type: 
  Country: None (occurrence: None)
  Receive Date: 20120813
  Receipt Date: 20120806
  Transmission Date: 20120928
  Serious: Yes (Life-Threatening, Hospitalization)
  Sender: FDA-Public Use
  Company Number: US-SANOFI-AVENTIS-2012SA015636

PATIENT
  Age: 58 Year
  Sex: Male
  Weight: 121.7 kg

DRUGS (26)
  1. DOCETAXEL [Suspect]
     Route: 042
     Dates: start: 20120223, end: 20120223
  2. DOCETAXEL [Suspect]
     Indication: PROSTATE CANCER METASTATIC
     Route: 042
     Dates: start: 20110930, end: 20110930
  3. DORZOLAMIDE [Concomitant]
     Route: 047
     Dates: start: 20101018
  4. PREDNISONE TAB [Suspect]
     Indication: PROSTATE CANCER METASTATIC
     Route: 048
     Dates: start: 20110930, end: 20120305
  5. DOXYCYCLINE HYCLATE [Concomitant]
     Route: 048
     Dates: start: 20110819
  6. EZETIMIBE [Concomitant]
     Route: 048
     Dates: start: 20080606
  7. SERTRALINE HYDROCHLORIDE [Concomitant]
     Route: 048
     Dates: start: 20110118
  8. BIOTIN [Concomitant]
     Route: 048
  9. METFORMIN HYDROCHLORIDE [Concomitant]
     Route: 048
     Dates: start: 20100521
  10. ST MARY'S THISTLE [Concomitant]
     Route: 048
  11. HYDROCORTISONE [Concomitant]
     Route: 048
     Dates: start: 20110701
  12. LISINOPRIL [Concomitant]
     Route: 048
     Dates: start: 20100521
  13. PIOGLITAZONE [Concomitant]
     Route: 048
     Dates: start: 20100521
  14. ROSUVASTATIN [Concomitant]
     Route: 048
     Dates: start: 20080606
  15. CALCIUM [Concomitant]
     Route: 048
  16. GARLIC [Concomitant]
     Route: 048
  17. ACYCLOVIR [Concomitant]
     Route: 048
     Dates: start: 20101020
  18. CARBOXYMETHYLCELLULOSE SODIUM [Concomitant]
     Route: 047
     Dates: start: 20101206
  19. BISOPROLOL [Concomitant]
     Route: 048
     Dates: start: 20080606
  20. CHOLECALCIFEROL [Concomitant]
     Route: 048
  21. FISH OIL [Concomitant]
     Route: 048
  22. FOLIC ACID [Concomitant]
     Route: 048
  23. GLIPIZIDE [Concomitant]
     Route: 048
     Dates: start: 20100825
  24. GOSERELIN [Concomitant]
     Route: 058
     Dates: start: 20110924
  25. ASPIRIN [Concomitant]
     Route: 048
  26. HERBAL PREPARATION [Concomitant]
     Route: 048

REACTIONS (1)
  - ENCEPHALOPATHY [None]
